FAERS Safety Report 5914967-3 (Version None)
Quarter: 2008Q4

REPORT INFORMATION
  Report Type: 
  Country: None (occurrence: None)
  Receive Date: 20081010
  Receipt Date: 20080929
  Transmission Date: 20090506
  Serious: Yes (Hospitalization)
  Sender: FDA-Public Use
  Company Number: JP-WYE-H05884208

PATIENT
  Sex: Male

DRUGS (12)
  1. ANCARON [Suspect]
     Indication: VENTRICULAR TACHYCARDIA
     Route: 048
     Dates: start: 20060830, end: 20060927
  2. ANCARON [Suspect]
     Route: 048
     Dates: start: 20060928, end: 20080821
  3. BLOPRESS [Concomitant]
     Indication: HYPERTENSION
     Dosage: 8 MG
     Route: 048
     Dates: start: 20061206
  4. LASIX [Concomitant]
     Indication: CARDIAC FAILURE
     Dosage: 10 MG
     Route: 048
     Dates: start: 20060830
  5. URINORM [Concomitant]
     Indication: HYPERURICAEMIA
     Dosage: 25 MG
     Route: 048
     Dates: start: 20070926
  6. NITROPEN [Concomitant]
     Dosage: 0.3 MG PRN
     Route: 060
  7. CONIEL [Concomitant]
     Indication: ANGINA PECTORIS
     Dosage: 4 MG
     Route: 048
     Dates: start: 20080409
  8. LENDORMIN [Concomitant]
     Indication: INSOMNIA
     Dosage: 0.25 MG
     Route: 048
     Dates: start: 20060830
  9. FRANDOL [Concomitant]
     Dosage: 40 MG
     Route: 065
  10. LIPITOR [Concomitant]
     Indication: HYPERCHOLESTEROLAEMIA
     Dosage: 5 MG
     Route: 048
     Dates: start: 20080604
  11. ASPIRIN [Concomitant]
     Indication: ANGINA PECTORIS
     Dosage: 100 MG
     Route: 048
     Dates: start: 20060810
  12. HARNAL [Concomitant]
     Indication: BENIGN PROSTATIC HYPERPLASIA
     Dosage: 0.2 MG
     Route: 048
     Dates: start: 20060830

REACTIONS (6)
  - EOSINOPHILIC PNEUMONIA [None]
  - FUNGAL INFECTION [None]
  - LUNG CONSOLIDATION [None]
  - LUNG DISORDER [None]
  - NASOPHARYNGITIS [None]
  - PULMONARY OEDEMA [None]
